FAERS Safety Report 17975161 (Version 2)
Quarter: 2020Q3

REPORT INFORMATION
  Report Type: Spontaneous
  Country: FR (occurrence: FR)
  Receive Date: 20200702
  Receipt Date: 20200826
  Transmission Date: 20201103
  Serious: Yes (Life-Threatening)
  Sender: FDA-Public Use
  Company Number: FR-BAUSCH-BL-2020-018819

PATIENT
  Age: 15 Year
  Sex: Male
  Weight: 44 kg

DRUGS (5)
  1. OMEPRAZOLE. [Concomitant]
     Active Substance: OMEPRAZOLE
     Indication: PRODUCT USED FOR UNKNOWN INDICATION
  2. MICROPAKINE [Suspect]
     Active Substance: VALPROATE SODIUM
     Indication: PRODUCT USED FOR UNKNOWN INDICATION
     Dosage: 240 MILLIGRAM EVERY 1 DAY? 80 MG IN THE MORNING 40 MG AT NOON (04:00 PM) AND 80 MG AT NIGHT
     Route: 048
     Dates: start: 202003, end: 20200513
  3. CHLORHYDRATE DE FLUOXETINE [Suspect]
     Active Substance: FLUOXETINE HYDROCHLORIDE
     Indication: PRODUCT USED FOR UNKNOWN INDICATION
     Route: 048
     Dates: start: 202003, end: 20200513
  4. RIVOTRIL [Concomitant]
     Active Substance: CLONAZEPAM
     Indication: PRODUCT USED FOR UNKNOWN INDICATION
     Dosage: 1/12 MILLILITRE
     Dates: start: 2019, end: 2020
  5. TETRABENAZINE. [Suspect]
     Active Substance: TETRABENAZINE
     Indication: DYSKINESIA
     Route: 048
     Dates: start: 201911, end: 20200513

REACTIONS (5)
  - Product use issue [Unknown]
  - Hepatitis [Recovered/Resolved]
  - Neuroleptic malignant syndrome [Recovered/Resolved]
  - Acute hepatic failure [Recovered/Resolved]
  - Pancreatitis [Recovered/Resolved]

NARRATIVE: CASE EVENT DATE: 201911
